FAERS Safety Report 17628740 (Version 2)
Quarter: 2020Q2

REPORT INFORMATION
  Report Type: Report from Study
  Country: None (occurrence: US)
  Receive Date: 20200406
  Receipt Date: 20200407
  Transmission Date: 20200713
  Serious: Yes (Hospitalization)
  Sender: FDA-Public Use
  Company Number: US-ABBVIE-20K-163-3350274-00

PATIENT
  Sex: Male

DRUGS (1)
  1. VENCLEXTA [Suspect]
     Active Substance: VENETOCLAX
     Indication: MANTLE CELL LYMPHOMA
     Route: 048
     Dates: start: 20190522

REACTIONS (4)
  - Gastrointestinal disorder [Unknown]
  - Constipation [Unknown]
  - Transfusion [Recovering/Resolving]
  - Ulcer haemorrhage [Unknown]

NARRATIVE: CASE EVENT DATE: 2020
